FAERS Safety Report 7800645-2 (Version None)
Quarter: 2011Q4

REPORT INFORMATION
  Report Type: 
  Country: None (occurrence: None)
  Receive Date: 20111006
  Receipt Date: 20110713
  Transmission Date: 20120403
  Serious: No
  Sender: FDA-Public Use
  Company Number: US-BAYER-2011-061775

PATIENT
  Age: 48 Year
  Sex: Female
  Weight: 63 kg

DRUGS (5)
  1. PROZAC [Concomitant]
  2. MUCINEX [Concomitant]
  3. CLARITIN [Concomitant]
  4. LEVOTHYROXINE SODIUM [Concomitant]
  5. ALEVE (CAPLET) [Suspect]
     Dosage: 3 U, QD
     Route: 048

REACTIONS (1)
  - NO ADVERSE EVENT [None]
